FAERS Safety Report 5910401-8 (Version None)
Quarter: 2008Q4

REPORT INFORMATION
  Report Type: 
  Country: None (occurrence: None)
  Receive Date: 20081007
  Receipt Date: 20080123
  Transmission Date: 20090506
  Serious: No
  Sender: FDA-Public Use
  Company Number: US-ASTRAZENECA-2008UW01650

PATIENT
  Age: 47 Year
  Sex: Female
  Weight: 81.7 kg

DRUGS (2)
  1. ARIMIDEX [Suspect]
     Indication: BREAST CANCER
     Route: 048
  2. GLUCOTROL [Concomitant]

REACTIONS (1)
  - MENSTRUAL DISORDER [None]
